FAERS Safety Report 9189199 (Version 1)
Quarter: 2013Q1

REPORT INFORMATION
  Report Type: Spontaneous
  Country: US (occurrence: None)
  Receive Date: 20130321
  Receipt Date: 20130321
  Transmission Date: 20140127
  Serious: No
  Sender: FDA-Public Use
  Company Number: None

PATIENT
  Sex: Female
  Weight: 27.2 kg

DRUGS (10)
  1. DAPSONE 25 MG TABLET [Suspect]
     Indication: ANTIFUNGAL PROPHYLAXIS
     Dosage: 50 MG -2 TABLETS- DAILY PO
     Route: 048
     Dates: start: 20120823, end: 20131213
  2. CEFEPIME [Concomitant]
  3. FEXOFENADINE [Concomitant]
  4. OXYBUTYNIN [Concomitant]
  5. POLYETHYLENE [Concomitant]
  6. GLYCOL [Concomitant]
  7. ACETAMINOPHEN [Concomitant]
  8. ONDANSETRON [Concomitant]
  9. MERCAPTOPURINE [Concomitant]
  10. METHOTREXATE [Concomitant]

REACTIONS (2)
  - Pyrexia [None]
  - Blood methaemoglobin present [None]
